FAERS Safety Report 23472873 (Version 1)
Quarter: 2024Q1

REPORT INFORMATION
  Report Type: Spontaneous
  Country: US (occurrence: US)
  Receive Date: 20240203
  Receipt Date: 20240203
  Transmission Date: 20240410
  Serious: No
  Sender: FDA-Public Use
  Company Number: US-Horizon-2020HZN01963

PATIENT

DRUGS (1)
  1. TEPEZZA [Suspect]
     Active Substance: TEPROTUMUMAB-TRBW
     Indication: Endocrine ophthalmopathy
     Dosage: UNK
     Route: 042
     Dates: start: 20200306, end: 20200730

REACTIONS (19)
  - Anxiety [Recovering/Resolving]
  - Poor quality sleep [Unknown]
  - Asthenopia [Recovered/Resolved]
  - Poor venous access [Recovered/Resolved]
  - Diplopia [Not Recovered/Not Resolved]
  - Vision blurred [Recovered/Resolved]
  - Pruritus [Recovering/Resolving]
  - Feeling cold [Recovered/Resolved]
  - Lacrimation increased [Recovering/Resolving]
  - Hypersensitivity [Unknown]
  - Abdominal discomfort [Recovering/Resolving]
  - Eye pruritus [Recovering/Resolving]
  - Eye discharge [Recovering/Resolving]
  - Dizziness [Recovering/Resolving]
  - Nausea [Recovered/Resolved]
  - Dry skin [Recovering/Resolving]
  - Nausea [Recovering/Resolving]
  - Headache [Recovered/Resolved]
  - Fatigue [Recovering/Resolving]

NARRATIVE: CASE EVENT DATE: 20200301
